FAERS Safety Report 5124822-7 (Version None)
Quarter: 2006Q4

REPORT INFORMATION
  Report Type: 
  Country: None (occurrence: None)
  Receive Date: 20061006
  Receipt Date: 20060926
  Transmission Date: 20070319
  Serious: Yes (Death)
  Sender: FDA-Public Use
  Company Number: 2006117158

PATIENT
  Age: 11 Year
  Sex: Male

DRUGS (1)
  1. SILDENAFIL CITRATE [Suspect]
     Indication: PROMOTION OF PERIPHERAL CIRCULATION
     Dosage: ORAL
     Route: 048
     Dates: start: 20060912, end: 20060914

REACTIONS (3)
  - DYSPNOEA [None]
  - HYPERTENSION [None]
  - INCORRECT ROUTE OF DRUG ADMINISTRATION [None]
